FAERS Safety Report 10522830 (Version 6)
Quarter: 2015Q4

REPORT INFORMATION
  Report Type: Spontaneous
  Country: US (occurrence: US)
  Receive Date: 20141016
  Receipt Date: 20151228
  Transmission Date: 20160304
  Serious: Yes (Other)
  Sender: FDA-Public Use
  Company Number: US-PFIZER INC-2014280079

PATIENT
  Age: 60 Year
  Sex: Male
  Weight: 68 kg

DRUGS (34)
  1. ATENOLOL. [Concomitant]
     Active Substance: ATENOLOL
     Dosage: 25 MG, DAILY
     Dates: start: 20150615
  2. COUMADIN [Concomitant]
     Active Substance: WARFARIN SODIUM
     Dosage: 5 MG, DAILY
     Route: 048
     Dates: start: 20140813
  3. PERCOCET [Concomitant]
     Active Substance: ACETAMINOPHEN\OXYCODONE HYDROCHLORIDE
     Indication: PAIN
     Dosage: 5/325 TAKE 1-2 TABS;Q 4H PRN
     Route: 048
  4. PRAVASTATIN [Concomitant]
     Active Substance: PRAVASTATIN\PRAVASTATIN SODIUM
     Dosage: 20 UNK, (ONE TABLET AT BEDTIME)
     Dates: start: 20150527
  5. LOVENOX [Concomitant]
     Active Substance: ENOXAPARIN SODIUM
     Dosage: 80 MG, BID
     Route: 058
  6. ATENOLOL. [Concomitant]
     Active Substance: ATENOLOL
     Indication: HYPERTENSION
     Dosage: 25 MG, 2X/DAY
  7. HYDROCHLOROTHIAZIDE. [Concomitant]
     Active Substance: HYDROCHLOROTHIAZIDE
     Dosage: 25 MG, DAILY
  8. ZOLPIDEM TARTRATE. [Concomitant]
     Active Substance: ZOLPIDEM TARTRATE
     Indication: INSOMNIA
     Dosage: 5 MG, 1X/DAY (BEDTIME) (MAY REPEAT IN AN HOUR IF NOT ASLEEP)
     Dates: start: 20141120
  9. LYRICA [Suspect]
     Active Substance: PREGABALIN
     Indication: NEURALGIA
     Dosage: 75 MG, 2X/DAY
     Route: 048
     Dates: start: 2009, end: 2013
  10. ATENOLOL. [Concomitant]
     Active Substance: ATENOLOL
     Dosage: 12.5 MG, DAILY
     Route: 048
     Dates: start: 20141120
  11. COUMADIN [Concomitant]
     Active Substance: WARFARIN SODIUM
     Dosage: 5 MG, ON MON,WED,FRI
     Route: 048
  12. PRAVASTATIN [Concomitant]
     Active Substance: PRAVASTATIN\PRAVASTATIN SODIUM
     Indication: HYPERLIPIDAEMIA
     Dosage: 25 MG, DAILY
     Route: 048
  13. ELAVIL [Concomitant]
     Active Substance: AMITRIPTYLINE HYDROCHLORIDE
     Dosage: 25 MG, TID
  14. SULFAMETHOXAZOLE-TMP DS 800-160MG [Concomitant]
     Indication: INCISION SITE INFECTION
     Dosage: ONE TABLET, 2X/DAY
     Dates: start: 20140224
  15. TIZANIDINE HCL [Concomitant]
     Active Substance: TIZANIDINE HYDROCHLORIDE
     Indication: MUSCLE STRAIN
  16. WARFARIN SODIUM. [Concomitant]
     Active Substance: WARFARIN SODIUM
     Indication: PERIPHERAL ARTERIAL OCCLUSIVE DISEASE
     Dosage: 2 MG, DAILY
     Route: 048
     Dates: start: 20140813
  17. NITRO-BID [Concomitant]
     Active Substance: NITROGLYCERIN
     Indication: PERIPHERAL ARTERIAL OCCLUSIVE DISEASE
     Dosage: 2%,1 (ONE) INCH FOUR TIMES DAILY TO FOOT)
     Dates: start: 20140530
  18. FLEXERIL [Concomitant]
     Active Substance: CYCLOBENZAPRINE HYDROCHLORIDE
     Dosage: 10 MG, 2X/DAY AS NEEDED
     Dates: start: 20110411
  19. TIZANIDINE HCL [Concomitant]
     Active Substance: TIZANIDINE HYDROCHLORIDE
     Indication: MUSCLE SPASMS
     Dosage: 4 MG, AS NEEDED
     Dates: start: 20151026
  20. COUMADIN [Concomitant]
     Active Substance: WARFARIN SODIUM
     Indication: PERIPHERAL ARTERIAL OCCLUSIVE DISEASE
     Dosage: UNK (5MG FOUR DAYS A WEEK AND 6MG THREE DAYS A WEEK)
     Route: 048
  21. COUMADIN [Concomitant]
     Active Substance: WARFARIN SODIUM
     Dosage: 7 MG (ONE 5 MG TABLET + TWO 1 MG TABLETS), DAILY
     Route: 048
  22. COUMADIN [Concomitant]
     Active Substance: WARFARIN SODIUM
     Dosage: 5 MG, UNK
     Dates: start: 20150828
  23. PRAVASTATIN [Concomitant]
     Active Substance: PRAVASTATIN\PRAVASTATIN SODIUM
     Dosage: 20 MG, DAILY
     Route: 048
  24. HYDROCODONE W/ACETAMINOPHEN [Concomitant]
     Active Substance: ACETAMINOPHEN\HYDROCODONE BITARTRATE
     Dosage: TWO 10-325MG TABLET EVERY SIX HOURS AS NEEDED
     Route: 048
     Dates: start: 20141212
  25. WARFARIN SODIUM. [Concomitant]
     Active Substance: WARFARIN SODIUM
     Dosage: 2 MG, DAILY
     Dates: start: 20150828
  26. ZOLPIDEM TARTRATE. [Concomitant]
     Active Substance: ZOLPIDEM TARTRATE
     Dosage: 5 MG, UNK
     Route: 048
     Dates: start: 20150817
  27. LYRICA [Suspect]
     Active Substance: PREGABALIN
     Dosage: 50 MG, 3X/DAY
     Route: 048
     Dates: start: 20141019
  28. PRAVASTATIN [Concomitant]
     Active Substance: PRAVASTATIN\PRAVASTATIN SODIUM
     Dosage: 20 MG, UNK
     Route: 048
  29. ASA [Concomitant]
     Active Substance: ASPIRIN
     Dosage: 81 MG, DAILY (TAKE 1 BABY ASPIRIN + COUMADIN)
     Route: 048
  30. MUPIROCIN. [Concomitant]
     Active Substance: MUPIROCIN
     Indication: ISCHAEMIC ULCER
     Dosage: 2%, ONE APPLICATION, 2X/DAY
     Dates: start: 20140415
  31. VIAGRA [Concomitant]
     Active Substance: SILDENAFIL CITRATE
     Indication: ORGANIC ERECTILE DYSFUNCTION
     Dosage: 50 MG, UNK
     Route: 048
     Dates: start: 20150319
  32. COUMADIN [Concomitant]
     Active Substance: WARFARIN SODIUM
     Dosage: 2.5 MG, ON SUN,TUES,THURS,SAT
     Route: 048
  33. PRAVASTATIN SODIUM. [Concomitant]
     Active Substance: PRAVASTATIN SODIUM
     Dosage: 20 MG, 1X/DAY (AT BEDTIME)
     Route: 048
     Dates: start: 20141120
  34. TRIAMCINOLONE ACETONIDE. [Concomitant]
     Active Substance: TRIAMCINOLONE ACETONIDE
     Dosage: 0.1%, ONE APPLICATION, 2X/DAY
     Dates: start: 20141007

REACTIONS (4)
  - Product use issue [Unknown]
  - Thrombosis [Unknown]
  - Gait disturbance [Unknown]
  - Balance disorder [Unknown]

NARRATIVE: CASE EVENT DATE: 2009
